FAERS Safety Report 5295647-7 (Version None)
Quarter: 2007Q2

REPORT INFORMATION
  Report Type: 
  Country: None (occurrence: None)
  Receive Date: 20070410
  Receipt Date: 20070410
  Transmission Date: 20071010
  Serious: Yes (Other)
  Sender: FDA-Public Use
  Company Number: None

PATIENT
  Age: 96 Year
  Sex: Female
  Weight: 52 kg

DRUGS (2)
  1. VENOFER [Suspect]
     Indication: DIVERTICULITIS
     Dosage: 800MG ONCE IV
     Route: 042
  2. VENOFER [Suspect]
     Indication: MELAENA
     Dosage: 800MG ONCE IV
     Route: 042

REACTIONS (5)
  - COLD SWEAT [None]
  - HYPOTENSION [None]
  - INFUSION RELATED REACTION [None]
  - NAUSEA [None]
  - UNRESPONSIVE TO STIMULI [None]
